FAERS Safety Report 7801857-4 (Version None)
Quarter: 2011Q4

REPORT INFORMATION
  Report Type: 
  Country: None (occurrence: None)
  Receive Date: 20111005
  Receipt Date: 20110920
  Transmission Date: 20120403
  Serious: Yes (Other)
  Sender: FDA-Public Use
  Company Number: FK201102021

PATIENT
  Age: 86 Year
  Sex: Male

DRUGS (2)
  1. NEDAPLATIN (NEDAPLATIN) (NEDAPLATIN) [Suspect]
     Indication: OESOPHAGEAL ADENOCARCINOMA
     Dosage: 5 MG, /BODY; 10 MG, /BODY
  2. FLUOROURACIL [Suspect]
     Indication: OESOPHAGEAL ADENOCARCINOMA
     Dosage: 250 MG,/BODY; 500 MG,/BODY

REACTIONS (6)
  - LEUKOPENIA [None]
  - THROMBOCYTOPENIA [None]
  - OEDEMA [None]
  - PLEURISY [None]
  - PERICARDITIS [None]
  - TOXICITY TO VARIOUS AGENTS [None]
